FAERS Safety Report 7064229-9 (Version None)
Quarter: 2010Q4

REPORT INFORMATION
  Report Type: 
  Country: None (occurrence: None)
  Receive Date: 20101027
  Receipt Date: 20100412
  Transmission Date: 20110411
  Serious: Yes (Other)
  Sender: FDA-Public Use
  Company Number: US-ASTRAZENECA-2010SE01729

PATIENT
  Age: 40 Year
  Sex: Male

DRUGS (10)
  1. SEROQUEL [Suspect]
     Route: 048
  2. LITHIUM CARBONATE [Concomitant]
     Dates: start: 20010704
  3. THORAZINE [Concomitant]
     Dates: start: 20010704
  4. ZOLOFT [Concomitant]
     Dates: start: 20010704
  5. PAXIL [Concomitant]
     Dates: start: 20010704
  6. HALDOL [Concomitant]
     Dates: start: 20010704
  7. XANAX [Concomitant]
     Dates: start: 20010704
  8. KLONOPIN [Concomitant]
     Dates: start: 20010704
  9. NEURONTIN [Concomitant]
     Dates: start: 20010704
  10. MELLARIL [Concomitant]
     Dosage: 50-150 MG
     Dates: start: 20010704

REACTIONS (3)
  - DIABETIC RETINOPATHY [None]
  - TYPE 1 DIABETES MELLITUS [None]
  - TYPE 2 DIABETES MELLITUS [None]
